FAERS Safety Report 15654454 (Version 1)
Quarter: 2018Q4

REPORT INFORMATION
  Report Type: Spontaneous
  Country: GB (occurrence: GB)
  Receive Date: 20181126
  Receipt Date: 20181126
  Transmission Date: 20190205
  Serious: Yes (Hospitalization, Other)
  Sender: FDA-Public Use
  Company Number: GB-ACCORD-092767

PATIENT
  Age: 74 Year
  Sex: Male

DRUGS (9)
  1. GEMCITABINE/GEMCITABINE HYDROCHLORIDE [Suspect]
     Active Substance: GEMCITABINE\GEMCITABINE HYDROCHLORIDE
     Indication: CHEMOTHERAPY
     Dosage: 30 MIN ON DAYS 1, 8, AND 15 OF A 28-DAY?CYCLE.
     Route: 042
  2. TAMSULOSIN/TAMSULOSIN HYDROCHLORIDE [Concomitant]
  3. RIVAROXABAN [Concomitant]
     Active Substance: RIVAROXABAN
  4. HYDROCHLOROTHIAZIDE/LOSARTAN [Concomitant]
     Active Substance: HYDROCHLOROTHIAZIDE\LOSARTAN
  5. OXYCODONE/PARACETAMOL [Concomitant]
  6. AMLODIPINE [Concomitant]
     Active Substance: AMLODIPINE BESYLATE
  7. OMEPRAZOLE. [Concomitant]
     Active Substance: OMEPRAZOLE
  8. PANCRELIPASE. [Concomitant]
     Active Substance: PANCRELIPASE
  9. ENOXAPARIN [Concomitant]
     Active Substance: ENOXAPARIN
     Indication: EMBOLISM VENOUS

REACTIONS (6)
  - Skin necrosis [Unknown]
  - Pseudocellulitis [Recovered/Resolved]
  - Neutropenia [Recovered/Resolved]
  - Inflammation [Recovered/Resolved]
  - Anaemia [Unknown]
  - Pyrexia [Recovered/Resolved]
